FAERS Safety Report 6405195-6 (Version None)
Quarter: 2009Q4

REPORT INFORMATION
  Report Type: 
  Country: None (occurrence: None)
  Receive Date: 20091019
  Receipt Date: 20091012
  Transmission Date: 20100525
  Serious: Yes (Death, Hospitalization, Other)
  Sender: FDA-Public Use
  Company Number: US-ALEXION-A200900696

PATIENT
  Sex: Female
  Weight: 57.143 kg

DRUGS (11)
  1. SOLIRIS [Suspect]
     Indication: PAROXYSMAL NOCTURNAL HAEMOGLOBINURIA
     Dosage: 600 MG, QW
     Route: 042
     Dates: start: 20081010, end: 20080101
  2. SOLIRIS [Suspect]
     Dosage: 900 MG, Q2W
     Route: 042
     Dates: start: 20081101, end: 20090821
  3. COUMADIN [Concomitant]
     Indication: ANTICOAGULANT THERAPY
     Dosage: 2.5 MG, QD, HS
     Route: 048
  4. LASIX [Concomitant]
     Dosage: 20 MG, QD
  5. BUMEX [Concomitant]
     Dosage: 1 MG, QD
  6. VITAMIN B12                        /00056201/ [Concomitant]
     Dosage: UNK, QD
     Route: 060
  7. ACIPHEX [Concomitant]
     Dosage: 20 MG, QD
  8. AMBIEN [Concomitant]
     Indication: INSOMNIA
     Dosage: 10 MG, PRN, HS
     Route: 048
  9. DRISDOL [Concomitant]
     Dosage: 1 MG, QW
  10. ANTIVERT                           /00007101/ [Concomitant]
     Indication: DIZZINESS
     Dosage: 25 MG, PRN
     Route: 048
  11. DARVOCET-N 100 [Concomitant]
     Indication: PAIN
     Dosage: 100, PRN, 1 OR 2 Q4H

REACTIONS (4)
  - HYPOTENSION [None]
  - PSEUDOMONAS INFECTION [None]
  - RENAL FAILURE ACUTE [None]
  - SEPSIS [None]
